FAERS Safety Report 5945715-9 (Version None)
Quarter: 2008Q4

REPORT INFORMATION
  Report Type: 
  Country: None (occurrence: None)
  Receive Date: 20081107
  Receipt Date: 20081031
  Transmission Date: 20090506
  Serious: Yes (Other)
  Sender: FDA-Public Use
  Company Number: IT-GENENTECH-270993

PATIENT
  Age: 56 Year
  Sex: Female

DRUGS (3)
  1. MABTHERA [Suspect]
     Indication: B-CELL LYMPHOMA
     Dosage: UNK
     Dates: start: 20040401
  2. MABTHERA [Suspect]
     Dosage: UNK
  3. MABTHERA [Suspect]
     Dosage: UNK
     Dates: start: 20050901

REACTIONS (1)
  - ACUTE MYELOID LEUKAEMIA [None]
